FAERS Safety Report 5187231-0 (Version None)
Quarter: 2006Q4

REPORT INFORMATION
  Report Type: 
  Country: None (occurrence: None)
  Receive Date: 20061220
  Receipt Date: 20060923
  Transmission Date: 20070319
  Serious: No
  Sender: FDA-Public Use
  Company Number: US-AMGEN-US194685

PATIENT
  Sex: Female

DRUGS (1)
  1. ENBREL [Suspect]
     Indication: ARTHRITIS
     Route: 058
     Dates: start: 20060901

REACTIONS (2)
  - INJECTION SITE ERYTHEMA [None]
  - INJECTION SITE SWELLING [None]
